FAERS Safety Report 5514944-0 (Version None)
Quarter: 2007Q4

REPORT INFORMATION
  Report Type: 
  Country: None (occurrence: None)
  Receive Date: 20071113
  Receipt Date: 20061016
  Transmission Date: 20080405
  Serious: No
  Sender: FDA-Public Use
  Company Number: A0623808A

PATIENT
  Age: 75 Year
  Sex: Male

DRUGS (10)
  1. COREG [Suspect]
     Dosage: 25MG TWICE PER DAY
     Route: 048
     Dates: start: 20060601
  2. PLAVIX [Concomitant]
  3. AMIODARONE HCL [Concomitant]
  4. NORVASC [Concomitant]
  5. ISO-BID [Concomitant]
  6. BENICAR [Concomitant]
  7. DIGOXIN [Concomitant]
  8. LASIX [Concomitant]
  9. POTASSIUM CHLORIDE [Concomitant]
  10. ZOCOR [Concomitant]

REACTIONS (1)
  - COUGH [None]
